FAERS Safety Report 24855864 (Version 1)
Quarter: 2025Q1

REPORT INFORMATION
  Report Type: Spontaneous
  Country: CZ (occurrence: CZ)
  Receive Date: 20250117
  Receipt Date: 20250117
  Transmission Date: 20250409
  Serious: Yes (Death, Hospitalization, Other)
  Sender: ACCORD
  Company Number: CZ-002147023-NVSC2024CZ225228

PATIENT
  Age: 45 Year
  Sex: Female

DRUGS (21)
  1. QUETIAPINE FUMARATE [Interacting]
     Active Substance: QUETIAPINE FUMARATE
     Indication: Product used for unknown indication
     Dosage: 300 MG, QD (0-0-0-1)
  2. CARBAMAZEPINE [Interacting]
     Active Substance: CARBAMAZEPINE
     Indication: Epilepsy
     Dosage: 300 MG, TID (2-1-0-2)
  3. CLARITHROMYCIN [Interacting]
     Active Substance: CLARITHROMYCIN
     Indication: C-reactive protein increased
  4. CIPROFLOXACIN [Suspect]
     Active Substance: CIPROFLOXACIN
     Indication: Pneumonia legionella
  5. DECADRON (DEXAMETHASONE SODIUM PHOSPHATE) [Interacting]
     Active Substance: DEXAMETHASONE SODIUM PHOSPHATE
     Indication: Constipation
  6. HALOPERIDOL [Suspect]
     Active Substance: HALOPERIDOL
     Indication: Product used for unknown indication
  7. MELPERONE HYDROCHLORIDE [Suspect]
     Active Substance: MELPERONE HYDROCHLORIDE
     Indication: Product used for unknown indication
     Dosage: 25 MG, QID (1-1-2-3)
  8. LEVOTHYROXINE [Concomitant]
     Active Substance: LEVOTHYROXINE
     Indication: Hypothyroidism
     Dosage: 125 UG, QD (MONDAY TO FRIDAY) (1-0-0))
  9. LEVOMEPROMAZINE [Concomitant]
     Active Substance: LEVOMEPROMAZINE
     Indication: Product used for unknown indication
     Dosage: 75 MG, QD (25 MG, TID (1-1-0-1))
  10. VALPROATE [Concomitant]
     Active Substance: VALPROIC ACID
     Indication: Product used for unknown indication
     Dosage: 1000 MG, QD (500 MG, BID (1-0-1))
  11. DIAZEPAM [Concomitant]
     Active Substance: DIAZEPAM
     Indication: Product used for unknown indication
     Dosage: 30 MG, QD (10 MG, TID (1-1-0-1))
  12. LACTULOSE [Concomitant]
     Active Substance: LACTULOSE
     Indication: Constipation
     Dosage: UNK, QD (UNK, TID (TABLE SPOON))
  13. CALCIUM CARBONATE [Concomitant]
     Active Substance: CALCIUM CARBONATE
     Indication: Product used for unknown indication
     Dosage: UNK, QD (0-0-1)
  14. CARBAMAZEPINE [Interacting]
     Active Substance: CARBAMAZEPINE
     Indication: Epilepsy
     Dosage: 1200 MG, QD (600 MG, BID)
  15. CARBAMAZEPINE [Interacting]
     Active Substance: CARBAMAZEPINE
     Indication: Epilepsy
     Dosage: 300 MG, BID (2-0-2)
  16. CARBAMAZEPINE [Interacting]
     Active Substance: CARBAMAZEPINE
     Indication: Epilepsy
     Dosage: 300 MG, BID (2-0-0-2)
  17. QUETIAPINE FUMARATE [Interacting]
     Active Substance: QUETIAPINE FUMARATE
     Indication: Product used for unknown indication
     Dosage: 200 MG, QD (1-0-0)
  18. QUETIAPINE FUMARATE [Interacting]
     Active Substance: QUETIAPINE FUMARATE
     Indication: Product used for unknown indication
     Dosage: 800 MG, QD
  19. LEVOTHYROXINE [Concomitant]
     Active Substance: LEVOTHYROXINE
     Indication: Hypothyroidism
     Dosage: 125 UG, QD (SATURDAY-SUNDAY) (1.5-0-0)
  20. LEVOTHYROXINE [Concomitant]
     Active Substance: LEVOTHYROXINE
     Indication: Hypothyroidism
     Dosage: UNK, QD (1.5-0-0 SAT-SUN)
  21. MELPERONE HYDROCHLORIDE [Suspect]
     Active Substance: MELPERONE HYDROCHLORIDE
     Indication: Product used for unknown indication

REACTIONS (7)
  - Torsade de pointes [Fatal]
  - Leukopenia [Unknown]
  - Thrombocytopenia [Unknown]
  - Hyponatraemia [Recovered/Resolved]
  - Electrocardiogram QT prolonged [Unknown]
  - Drug level increased [Unknown]
  - Drug interaction [Unknown]
